FAERS Safety Report 9026136 (Version 3)
Quarter: 2013Q1

REPORT INFORMATION
  Report Type: Spontaneous
  Country: JP (occurrence: JP)
  Receive Date: 20130123
  Receipt Date: 20130212
  Transmission Date: 20140127
  Serious: No
  Sender: FDA-Public Use
  Company Number: JP-ABBOTT-13P-087-1039381-00

PATIENT
  Age: 65 Year
  Sex: Female

DRUGS (3)
  1. HUMIRA [Suspect]
     Indication: CROHN^S DISEASE
     Dates: end: 20120314
  2. PENTASA [Suspect]
     Indication: CROHN^S DISEASE
  3. PREDNISOLONE [Suspect]
     Indication: CROHN^S DISEASE
     Dates: start: 20120224

REACTIONS (1)
  - Drug eruption [Recovered/Resolved]
